FAERS Safety Report 17558613 (Version 5)
Quarter: 2025Q4

REPORT INFORMATION
  Report Type: Report from Study
  Country: EU (occurrence: EU)
  Receive Date: 20200318
  Receipt Date: 20251222
  Transmission Date: 20260118
  Serious: Yes (Disabling, Other)
  Sender: GILEAD
  Company Number: EU-GILEAD-2020-0454840

PATIENT
  Sex: Male
  Weight: 78 kg

DRUGS (1)
  1. AXICABTAGENE CILOLEUCEL [Suspect]
     Active Substance: AXICABTAGENE CILOLEUCEL
     Indication: B-cell lymphoma
     Dosage: UNK, ONCE
     Route: 042
     Dates: start: 20200302, end: 20200302

REACTIONS (3)
  - Neurotoxicity [Not Recovered/Not Resolved]
  - Brain oedema [Not Recovered/Not Resolved]
  - Cytokine release syndrome [Recovered/Resolved]

NARRATIVE: CASE EVENT DATE: 20200307
